FAERS Safety Report 14850913 (Version 3)
Quarter: 2018Q2

REPORT INFORMATION
  Report Type: Report from Study
  Country: CA (occurrence: CA)
  Receive Date: 20180506
  Receipt Date: 20180529
  Transmission Date: 20180711
  Serious: Yes (Death)
  Sender: FDA-Public Use
  Company Number: PHHO2018CA005767

PATIENT
  Age: 48 Year
  Sex: Male
  Weight: 75.2 kg

DRUGS (1)
  1. EVEROLIMUS. [Suspect]
     Active Substance: EVEROLIMUS
     Indication: HEART TRANSPLANT
     Dosage: 0.5 MG, BID
     Route: 048
     Dates: start: 20070410, end: 20161101

REACTIONS (1)
  - Haemangioma [Fatal]

NARRATIVE: CASE EVENT DATE: 20180306
